FAERS Safety Report 7282995-4 (Version None)
Quarter: 2011Q1

REPORT INFORMATION
  Report Type: 
  Country: None (occurrence: None)
  Receive Date: 20110127
  Receipt Date: 20110113
  Transmission Date: 20110831
  Serious: No
  Sender: FDA-Public Use
  Company Number: 2011-00016

PATIENT
  Sex: Male
  Weight: 65.7716 kg

DRUGS (3)
  1. NYQUIL [Concomitant]
  2. AMOXICILLIN [Concomitant]
  3. ZICAM COLD REMEDY GEL SWABS [Suspect]
     Dosage: QD X 10 DAYS
     Dates: start: 20100401

REACTIONS (2)
  - AGEUSIA [None]
  - ANOSMIA [None]
